FAERS Safety Report 19081619 (Version 1)
Quarter: 2021Q1

REPORT INFORMATION
  Report Type: Spontaneous
  Country: US (occurrence: US)
  Receive Date: 20210331
  Receipt Date: 20210331
  Transmission Date: 20210420
  Serious: No
  Sender: FDA-Public Use
  Company Number: US-SA-2021SA104882

PATIENT
  Age: 14 Year
  Sex: Female

DRUGS (1)
  1. DUPIXENT [Suspect]
     Active Substance: DUPILUMAB
     Indication: PSORIASIS
     Dosage: 200 MG
     Route: 058
     Dates: start: 20191205

REACTIONS (5)
  - Erythema [Unknown]
  - Skin burning sensation [Unknown]
  - Product use in unapproved indication [Unknown]
  - Pruritus [Unknown]
  - Condition aggravated [Unknown]

NARRATIVE: CASE EVENT DATE: 20191205
